FAERS Safety Report 9355360 (Version 1)
Quarter: 2013Q2

REPORT INFORMATION
  Report Type: Spontaneous
  Country: CH (occurrence: CH)
  Receive Date: 20130619
  Receipt Date: 20130619
  Transmission Date: 20140414
  Serious: Yes (Hospitalization)
  Sender: FDA-Public Use
  Company Number: CH-CELGENEUS-151-21880-13060967

PATIENT
  Age: 57 Year
  Sex: Male
  Weight: 86 kg

DRUGS (7)
  1. REVLIMID [Suspect]
     Indication: PLASMA CELL MYELOMA
     Dosage: 25 MILLIGRAM
     Route: 048
     Dates: start: 20130522, end: 20130611
  2. BENDAMUSTINE [Suspect]
     Indication: PLASMA CELL MYELOMA
     Dosage: 150 MILLIGRAM
     Route: 041
     Dates: start: 20130522, end: 20130523
  3. DEXAMETHASONE [Suspect]
     Indication: PLASMA CELL MYELOMA
     Route: 048
     Dates: start: 20130522
  4. ACETYLSALICYLIC ACID [Concomitant]
     Indication: PROPHYLAXIS
     Dosage: 100 MILLIGRAM
     Route: 048
     Dates: start: 20130115, end: 20130601
  5. PREGABALIN [Concomitant]
     Indication: PERIPHERAL SENSORY NEUROPATHY
     Dosage: 150 MILLIGRAM
     Route: 048
     Dates: start: 20111018
  6. LEVODOPAMINE + DECABOXYLAIC INHIBITOR [Concomitant]
     Indication: PERIPHERAL SENSORY NEUROPATHY
     Dosage: 187.5 MILLIGRAM
     Route: 048
     Dates: start: 20111206
  7. COTRIMOXAZOLE [Concomitant]
     Indication: PROPHYLAXIS
     Dosage: 960 MILLIGRAM
     Route: 048
     Dates: start: 20130115

REACTIONS (1)
  - Retinal detachment [Recovered/Resolved]
